FAERS Safety Report 14819255 (Version 1)
Quarter: 2018Q2

REPORT INFORMATION
  Report Type: Spontaneous
  Country: US (occurrence: US)
  Receive Date: 20180427
  Receipt Date: 20180427
  Transmission Date: 20180711
  Serious: No
  Sender: FDA-Public Use
  Company Number: US-JNJFOC-20180419569

PATIENT
  Sex: Female

DRUGS (4)
  1. ZYRTEC [Suspect]
     Active Substance: CETIRIZINE HYDROCHLORIDE
     Indication: SEASONAL ALLERGY
     Dosage: IN THE MORNING
     Route: 065
  2. ZYRTEC [Suspect]
     Active Substance: CETIRIZINE HYDROCHLORIDE
     Indication: PRURITUS
     Dosage: IN THE MORNING
     Route: 065
  3. ALLEGRA [Concomitant]
     Active Substance: FEXOFENADINE HYDROCHLORIDE
     Indication: PRURITUS
     Dosage: AT NIGHT
     Route: 065
  4. ZYRTEC [Suspect]
     Active Substance: CETIRIZINE HYDROCHLORIDE
     Indication: ALLERGY TO ANIMAL
     Dosage: IN THE MORNING
     Route: 065

REACTIONS (3)
  - Product use in unapproved indication [Unknown]
  - Therapeutic response unexpected [Unknown]
  - Drug ineffective [Unknown]
